FAERS Safety Report 10073627 (Version 1)
Quarter: 2014Q2

REPORT INFORMATION
  Report Type: Report from Study
  Country: TW (occurrence: TW)
  Receive Date: 20140411
  Receipt Date: 20140411
  Transmission Date: 20141212
  Serious: No
  Sender: FDA-Public Use
  Company Number: PHHY2014TW044087

PATIENT
  Age: 28 Year
  Sex: Female

DRUGS (25)
  1. AMN107 [Suspect]
     Dates: start: 20110707, end: 20120112
  2. AMN107 [Suspect]
     Dates: start: 20120112, end: 20120405
  3. AMN107 [Suspect]
     Dates: start: 20120405, end: 20120523
  4. AMN107 [Suspect]
     Dates: start: 20120531, end: 20130531
  5. AMN107 [Suspect]
     Dates: start: 20130611
  6. AGGLUTEX [Concomitant]
     Indication: ASPIRATION BONE MARROW
     Dates: start: 20111201, end: 20111201
  7. AGGLUTEX [Concomitant]
     Dates: start: 20110811, end: 20110811
  8. AGGLUTEX [Concomitant]
     Dates: start: 20111201, end: 20111201
  9. AGGLUTEX [Concomitant]
     Dates: start: 20120811, end: 20120811
  10. AGGLUTEX [Concomitant]
     Dosage: UNK
  11. IMATINIB [Concomitant]
     Indication: CHRONIC MYELOID LEUKAEMIA
     Dates: start: 20120524, end: 20120530
  12. IMATINIB [Concomitant]
     Dates: start: 20130601, end: 20130611
  13. IMATINIB [Concomitant]
     Dates: start: 20120524, end: 20120530
  14. SILYMARIN [Concomitant]
     Indication: HEPATIC ENZYME ABNORMAL
     Dates: start: 20130117, end: 20130328
  15. SILYMARIN [Concomitant]
     Dates: start: 20120816, end: 20121011
  16. SILYMARIN [Concomitant]
     Dates: start: 20120419, end: 20120525
  17. SILYMARIN [Concomitant]
     Dates: start: 20130117, end: 20130328
  18. DYPHYLLINE [Concomitant]
     Indication: COUGH
     Dates: start: 20120830, end: 20120903
  19. IMATINIB MESYLATE [Concomitant]
     Indication: CHRONIC MYELOID LEUKAEMIA
     Dates: start: 20120524, end: 20120531
  20. AMOXICILLIN [Concomitant]
     Indication: UPPER RESPIRATORY TRACT INFECTION
     Dates: start: 20120830, end: 20120903
  21. SPIRONOLACTONE [Concomitant]
     Dates: start: 20120517, end: 20120525
  22. NOVAMIN [Concomitant]
     Indication: NAUSEA
     Dates: start: 20120126, end: 20120202
  23. DEXTROMETHORPHAN [Concomitant]
     Indication: COUGH
     Dates: start: 20120830, end: 20120903
  24. AMBROXOL [Concomitant]
     Indication: UPPER RESPIRATORY TRACT INFECTION
     Dates: start: 20120830, end: 20120903
  25. SPIRONOLACTONE [Concomitant]
     Indication: EYELID OEDEMA
     Dates: start: 20120517, end: 20120525

REACTIONS (1)
  - Aspartate aminotransferase increased [Unknown]
